FAERS Safety Report 17444776 (Version 1)
Quarter: 2020Q1

REPORT INFORMATION
  Report Type: Spontaneous
  Country: SE (occurrence: SE)
  Receive Date: 20200221
  Receipt Date: 20200221
  Transmission Date: 20200409
  Serious: Yes (Death)
  Sender: FDA-Public Use
  Company Number: SE-TEVA-2020-SE-1187312

PATIENT
  Sex: Male

DRUGS (1)
  1. VENLAFAXIN ACTAVIS [Suspect]
     Active Substance: VENLAFAXINE HYDROCHLORIDE
     Route: 065
     Dates: end: 20190729

REACTIONS (1)
  - Sudden death [Fatal]
